FAERS Safety Report 9186263 (Version 1)
Quarter: 2013Q1

REPORT INFORMATION
  Report Type: Spontaneous
  Country: FR (occurrence: FR)
  Receive Date: 20130325
  Receipt Date: 20130325
  Transmission Date: 20140127
  Serious: Yes (Hospitalization)
  Sender: FDA-Public Use
  Company Number: FR-VIIV HEALTHCARE LIMITED-B0874305A

PATIENT
  Age: 47 None
  Sex: Female

DRUGS (8)
  1. COMBIVIR [Suspect]
     Indication: HIV INFECTION
     Route: 048
     Dates: end: 20130108
  2. CISPLATINE [Suspect]
     Indication: PRODUCT USED FOR UNKNOWN INDICATION
     Dosage: 1INJ WEEKLY
     Route: 042
     Dates: start: 20121106, end: 201212
  3. WELLVONE [Concomitant]
     Indication: PROPHYLAXIS
     Route: 065
  4. AUGMENTIN [Concomitant]
     Indication: LYMPHOCELE
     Route: 065
     Dates: start: 201212, end: 201212
  5. NORVIR [Concomitant]
     Indication: HIV INFECTION
     Route: 065
  6. RADIOTHERAPY [Concomitant]
     Dates: start: 201210
  7. INVIRASE [Concomitant]
     Indication: HIV INFECTION
     Route: 065
  8. TAZOCILLINE [Concomitant]
     Indication: LYMPHOCELE
     Route: 065
     Dates: start: 20121203, end: 20121207

REACTIONS (4)
  - Aplasia [Recovered/Resolved]
  - Asthenia [Unknown]
  - General physical health deterioration [Unknown]
  - Pyrexia [Unknown]
